FAERS Safety Report 7189892-3 (Version None)
Quarter: 2010Q4

REPORT INFORMATION
  Report Type: 
  Country: None (occurrence: None)
  Receive Date: 20101123
  Receipt Date: 20100930
  Transmission Date: 20110411
  Serious: No
  Sender: FDA-Public Use
  Company Number: 019656

PATIENT
  Sex: Female
  Weight: 61.2 kg

DRUGS (5)
  1. CIMZIA [Suspect]
     Indication: CROHN'S DISEASE
     Dosage: (400 MG 1X/4 WEEKS SUBCUTANEOUS)
     Route: 058
     Dates: end: 20100901
  2. XANAX [Concomitant]
  3. LISINOPRIL [Concomitant]
  4. ZOLOFT [Concomitant]
  5. VITAMIN B12 NOS [Concomitant]

REACTIONS (1)
  - URINARY TRACT INFECTION [None]
